FAERS Safety Report 6177678-8 (Version None)
Quarter: 2009Q2

REPORT INFORMATION
  Report Type: 
  Country: None (occurrence: None)
  Receive Date: 20090504
  Receipt Date: 20081210
  Transmission Date: 20091009
  Serious: No
  Sender: FDA-Public Use
  Company Number: DE-ALEXION-A200800411

PATIENT

DRUGS (24)
  1. SOLIRIS [Suspect]
     Indication: PAROXYSMAL NOCTURNAL HAEMOGLOBINURIA
     Dosage: 600 MG, WEEKLY
     Route: 042
     Dates: start: 20070723, end: 20070813
  2. SOLIRIS [Suspect]
     Dosage: 900 MG, SINGLE
     Route: 042
     Dates: start: 20070820, end: 20070820
  3. SOLIRIS [Suspect]
     Dosage: 900 MG, SINGLE
     Route: 042
     Dates: start: 20070909, end: 20070909
  4. SOLIRIS [Suspect]
     Dosage: 900 MG, SINGLE
     Route: 042
     Dates: start: 20070917, end: 20070917
  5. SOLIRIS [Suspect]
     Dosage: 900 MG, Q2W
     Route: 042
     Dates: start: 20071001, end: 20071210
  6. SOLIRIS [Suspect]
     Dosage: 900 MG, Q2W
     Route: 042
     Dates: start: 20071227, end: 20080110
  7. SOLIRIS [Suspect]
     Dosage: 600 MG, QW
     Route: 042
     Dates: start: 20080520, end: 20080610
  8. SOLIRIS [Suspect]
     Dosage: 900 MG, Q2W
     Route: 042
     Dates: start: 20080616, end: 20081006
  9. SOLIRIS [Suspect]
     Dosage: 900 MG, SINGLE
     Route: 042
     Dates: start: 20081017, end: 20081017
  10. SOLIRIS [Suspect]
     Dosage: 900 MG, SINGLE
     Route: 042
     Dates: start: 20081021, end: 20081021
  11. SOLIRIS [Suspect]
     Dosage: 900 MG, Q2W
     Route: 042
     Dates: start: 20081021, end: 20081104
  12. SOLIRIS [Suspect]
     Dosage: 900 MG
     Route: 042
     Dates: start: 20081111
  13. PREDNISOLON                        /00016201/ [Concomitant]
     Dosage: 20 MG, UNK
     Dates: start: 20080101
  14. HYDROCHLOROTHIAZIDE [Concomitant]
     Dosage: 12.5 MG, UNK
  15. MARCUMAR [Concomitant]
  16. FOLSAN [Concomitant]
     Dosage: 5 MG, UNK
  17. KALINOR-BRAUSETABLETTEN [Concomitant]
     Dosage: 40 MVAL, UNK
  18. PANTOPRAZOL [Concomitant]
     Dosage: 40 MG, UNK
  19. ENALAPRIL [Concomitant]
     Dosage: 5 MG, UNK
  20. TRAMADOL HCL [Concomitant]
     Dosage: 100 MG, UNK
  21. MOVICOL                            /01749801/ [Concomitant]
  22. FOSAMAX [Concomitant]
     Dosage: 70 UNK, UNK
  23. SEVREDOL [Concomitant]
     Dosage: 5 MG, UNK
  24. CALCILAC                           /00944201/ [Concomitant]

REACTIONS (5)
  - ARTHRALGIA [None]
  - BLOOD BILIRUBIN INCREASED [None]
  - HYPOKALAEMIA [None]
  - NAUSEA [None]
  - VOMITING [None]
